FAERS Safety Report 10995133 (Version 1)
Quarter: 2015Q2

REPORT INFORMATION
  Report Type: Spontaneous
  Country: US (occurrence: US)
  Receive Date: 20150407
  Receipt Date: 20150407
  Transmission Date: 20150821
  Serious: Yes (Other)
  Sender: FDA-Public Use
  Company Number: US-JNJFOC-20150321664

PATIENT
  Age: 47 Year
  Sex: Female
  Weight: 77.11 kg

DRUGS (6)
  1. DURAGESIC [Suspect]
     Active Substance: FENTANYL
     Indication: PAIN
     Route: 062
     Dates: start: 201503
  2. DURAGESIC [Suspect]
     Active Substance: FENTANYL
     Indication: PAIN
     Route: 062
  3. DURAGESIC [Suspect]
     Active Substance: FENTANYL
     Indication: PAIN
     Route: 062
  4. DURAGESIC [Suspect]
     Active Substance: FENTANYL
     Indication: PAIN
     Route: 062
  5. DURAGESIC [Suspect]
     Active Substance: FENTANYL
     Indication: PAIN
     Route: 062
  6. DURAGESIC [Suspect]
     Active Substance: FENTANYL
     Indication: PAIN
     Route: 062

REACTIONS (9)
  - Lower limb fracture [Recovered/Resolved]
  - Product quality issue [Unknown]
  - Dermatitis contact [Recovered/Resolved]
  - Weight increased [Not Recovered/Not Resolved]
  - Gait disturbance [Recovered/Resolved]
  - Upper limb fracture [Recovered/Resolved]
  - Drug dose omission [Not Recovered/Not Resolved]
  - Body height decreased [Not Recovered/Not Resolved]
  - Drug ineffective [Recovered/Resolved]

NARRATIVE: CASE EVENT DATE: 201311
